FAERS Safety Report 16830746 (Version 1)
Quarter: 2019Q3

REPORT INFORMATION
  Report Type: Report from Study
  Country: None (occurrence: CA)
  Receive Date: 20190920
  Receipt Date: 20190920
  Transmission Date: 20191005
  Serious: Yes (Other)
  Sender: FDA-Public Use
  Company Number: CA-ABBVIE-19K-028-2927878-00

PATIENT
  Sex: Female

DRUGS (1)
  1. HUMIRA [Suspect]
     Active Substance: ADALIMUMAB
     Indication: CROHN^S DISEASE
     Route: 058
     Dates: start: 20170717, end: 20190905

REACTIONS (7)
  - Influenza [Unknown]
  - Precancerous cells present [Not Recovered/Not Resolved]
  - Diarrhoea [Not Recovered/Not Resolved]
  - Laryngitis [Unknown]
  - Bronchitis [Unknown]
  - Vaginal neoplasm [Not Recovered/Not Resolved]
  - Papilloma viral infection [Not Recovered/Not Resolved]
